FAERS Safety Report 10072033 (Version 1)
Quarter: 2014Q2

REPORT INFORMATION
  Report Type: Spontaneous
  Country: US (occurrence: None)
  Receive Date: 20140410
  Receipt Date: 20140410
  Transmission Date: 20141212
  Serious: Yes (Death)
  Sender: FDA-Public Use
  Company Number: None

PATIENT
  Age: 81 Year
  Sex: Male
  Weight: 66.23 kg

DRUGS (10)
  1. DEPAKOTE [Suspect]
     Indication: AGGRESSION
     Route: 048
     Dates: start: 20140111, end: 20140126
  2. QUETIAPINE (SERAQUEL) [Concomitant]
  3. PANTAPRAZOLE [Concomitant]
  4. RAPAFLO [Concomitant]
  5. SYNTHROID [Concomitant]
  6. ATROVENT HFA [Concomitant]
  7. ALBUTEROL [Concomitant]
  8. SENNA DOCUSATE [Concomitant]
  9. MIRALAX [Concomitant]
  10. MELATONIN [Concomitant]

REACTIONS (8)
  - Tremor [None]
  - Abnormal behaviour [None]
  - Miosis [None]
  - Balance disorder [None]
  - Somnolence [None]
  - Lethargy [None]
  - Pyrexia [None]
  - Chills [None]
